FAERS Safety Report 5743302-9 (Version None)
Quarter: 2008Q2

REPORT INFORMATION
  Report Type: 
  Country: None (occurrence: None)
  Receive Date: 20080519
  Receipt Date: 20080508
  Transmission Date: 20081010
  Serious: No
  Sender: FDA-Public Use
  Company Number: US-PFIZER INC-2008029021

PATIENT
  Sex: Female
  Weight: 50.3 kg

DRUGS (3)
  1. ESTRING [Suspect]
     Indication: VULVOVAGINAL DRYNESS
     Route: 067
     Dates: start: 20080118, end: 20080314
  2. VITAMIN CAP [Concomitant]
  3. TPN [Concomitant]

REACTIONS (4)
  - DIZZINESS [None]
  - HEADACHE [None]
  - NAUSEA [None]
  - VOMITING [None]
